FAERS Safety Report 15158676 (Version 6)
Quarter: 2019Q2

REPORT INFORMATION
  Report Type: Report from Study
  Country: CA (occurrence: CA)
  Receive Date: 20180718
  Receipt Date: 20190607
  Transmission Date: 20190711
  Serious: Yes (Death, Hospitalization, Other)
  Sender: FDA-Public Use
  Company Number: PHHY2017CA060240

PATIENT
  Age: 78 Year
  Sex: Male

DRUGS (4)
  1. AFINITOR [Concomitant]
     Active Substance: EVEROLIMUS
     Dosage: 10 MG, QD
     Route: 065
  2. AFINITOR [Concomitant]
     Active Substance: EVEROLIMUS
     Indication: PRODUCT USED FOR UNKNOWN INDICATION
     Route: 065
  3. SANDOSTATIN LAR DEPOT [Suspect]
     Active Substance: OCTREOTIDE ACETATE
     Indication: CARCINOID SYNDROME
     Dosage: 30 MG, QMO
     Route: 030
     Dates: start: 20170317, end: 20190503
  4. VALTREX [Suspect]
     Active Substance: VALACYCLOVIR HYDROCHLORIDE
     Indication: PRODUCT USED FOR UNKNOWN INDICATION
     Dosage: 500 MG, 1 TABLET 2 TIMES A DAY
     Route: 065

REACTIONS (27)
  - Blood pressure systolic increased [Unknown]
  - Mass [Unknown]
  - Herpes zoster [Not Recovered/Not Resolved]
  - Rhinorrhoea [Unknown]
  - Hepatic lesion [Unknown]
  - Hypoacusis [Unknown]
  - Fatigue [Recovering/Resolving]
  - Injection site mass [Unknown]
  - Sputum discoloured [Recovering/Resolving]
  - Hepatic neoplasm [Unknown]
  - Pancreatic disorder [Unknown]
  - Eating disorder [Recovering/Resolving]
  - Pyrexia [Fatal]
  - Musculoskeletal chest pain [Unknown]
  - Arthralgia [Recovered/Resolved]
  - Pneumonia [Fatal]
  - Blood pressure increased [Unknown]
  - Weight decreased [Unknown]
  - Pain [Not Recovered/Not Resolved]
  - Productive cough [Fatal]
  - Influenza like illness [Recovered/Resolved]
  - Myalgia [Recovering/Resolving]
  - Joint swelling [Unknown]
  - Benign prostatic hyperplasia [Unknown]
  - Metastases to skin [Unknown]
  - Metastases to spine [Unknown]
  - Hypersomnia [Recovering/Resolving]

NARRATIVE: CASE EVENT DATE: 20170619
